FAERS Safety Report 6915277-8 (Version None)
Quarter: 2010Q3

REPORT INFORMATION
  Report Type: 
  Country: None (occurrence: None)
  Receive Date: 20100809
  Receipt Date: 20091002
  Transmission Date: 20110219
  Serious: No
  Sender: FDA-Public Use
  Company Number: US-ABBOTT-09P-163-0595092-00

PATIENT
  Sex: Male
  Weight: 99.88 kg

DRUGS (5)
  1. DEPAKOTE ER [Suspect]
     Indication: MANIA
     Route: 048
     Dates: start: 20090601
  2. SEROQUEL [Concomitant]
     Indication: BIPOLAR DISORDER
  3. VITAMIN TAB [Concomitant]
     Indication: VITAMIN SUPPLEMENTATION
  4. PEPCID [Concomitant]
     Indication: DYSPEPSIA
  5. ATIVAN [Concomitant]
     Indication: PRODUCT USED FOR UNKNOWN INDICATION

REACTIONS (3)
  - DEHYDRATION [None]
  - MOBILITY DECREASED [None]
  - PSYCHOMOTOR HYPERACTIVITY [None]
